FAERS Safety Report 8804286 (Version 5)
Quarter: 2012Q4

REPORT INFORMATION
  Report Type: Report from Study
  Country: US (occurrence: US)
  Receive Date: 20120924
  Receipt Date: 20121217
  Transmission Date: 20130627
  Serious: Yes (Hospitalization)
  Sender: FDA-Public Use
  Company Number: US-JNJFOC-20120908180

PATIENT
  Age: 11 Year
  Sex: Male
  Weight: 28.6 kg

DRUGS (6)
  1. REMICADE [Suspect]
     Indication: PRODUCT USED FOR UNKNOWN INDICATION
     Route: 042
     Dates: start: 20080108
  2. HUMIRA [Concomitant]
     Indication: PRODUCT USED FOR UNKNOWN INDICATION
     Route: 065
  3. HUMIRA [Concomitant]
     Indication: PRODUCT USED FOR UNKNOWN INDICATION
     Route: 065
     Dates: start: 20110518
  4. PROGRAF [Concomitant]
  5. ZOFRAN [Concomitant]
  6. SOLU MEDROL [Concomitant]

REACTIONS (2)
  - Crohn^s disease [Recovered/Resolved]
  - Iron deficiency anaemia [Recovered/Resolved]
